FAERS Safety Report 11807954 (Version 2)
Quarter: 2015Q4

REPORT INFORMATION
  Report Type: Spontaneous
  Country: JP (occurrence: JP)
  Receive Date: 20151207
  Receipt Date: 20151222
  Transmission Date: 20160305
  Serious: Yes (Hospitalization)
  Sender: FDA-Public Use
  Company Number: JP-BAYER-2015-476693

PATIENT
  Age: 59 Year
  Sex: Male
  Weight: 63 kg

DRUGS (5)
  1. LEBENIN [Concomitant]
     Active Substance: LACTOBACILLUS ACIDOPHILUS\STREPTOCOCCUS FAECAIS
     Indication: PNEUMONIA CHLAMYDIAL
     Dosage: 1 DF, TID
     Route: 048
     Dates: start: 20151114
  2. MUCODYNE [Concomitant]
     Active Substance: CARBOCYSTEINE
     Indication: PNEUMONIA CHLAMYDIAL
     Dosage: 500 MG, TID
     Route: 048
     Dates: start: 20151114
  3. AVELOX [Suspect]
     Active Substance: MOXIFLOXACIN HYDROCHLORIDE
     Indication: PNEUMONIA
     Dosage: 400 MG, QD
     Route: 048
     Dates: start: 20151114, end: 20151124
  4. CEFTRIAXONE. [Concomitant]
     Active Substance: CEFTRIAXONE
     Indication: PNEUMONIA
     Dosage: UNK
     Dates: start: 20151123, end: 20151127
  5. CEFTRIAXONE. [Concomitant]
     Active Substance: CEFTRIAXONE
     Indication: PNEUMONIA
     Dosage: 1 G, QD
     Route: 042
     Dates: start: 20151114, end: 20151119

REACTIONS (2)
  - Eosinophilic pneumonia [Recovering/Resolving]
  - Pyrexia [Recovering/Resolving]

NARRATIVE: CASE EVENT DATE: 20151121
